FAERS Safety Report 7423677-5 (Version None)
Quarter: 2011Q2

REPORT INFORMATION
  Report Type: 
  Country: None (occurrence: None)
  Receive Date: 20110419
  Receipt Date: 20110412
  Transmission Date: 20111010
  Serious: Yes (Other)
  Sender: FDA-Public Use
  Company Number: NL-ASTRAZENECA-2011SE04995

PATIENT
  Age: 28091 Day
  Sex: Female

DRUGS (3)
  1. DOMPERIDON [Concomitant]
     Route: 048
  2. IRESSA [Suspect]
     Indication: LUNG NEOPLASM MALIGNANT
     Route: 048
     Dates: start: 20100425, end: 20110406
  3. PANTOPRAZOLE [Concomitant]
     Route: 048

REACTIONS (5)
  - DYSPEPSIA [None]
  - TRANSIENT ISCHAEMIC ATTACK [None]
  - NAUSEA [None]
  - DECREASED APPETITE [None]
  - ERUCTATION [None]
